FAERS Safety Report 7171479-X (Version None)
Quarter: 2010Q4

REPORT INFORMATION
  Report Type: 
  Country: None (occurrence: None)
  Receive Date: 20101217
  Receipt Date: 20101207
  Transmission Date: 20110411
  Serious: Yes (Hospitalization)
  Sender: FDA-Public Use
  Company Number: US-CELGENEUS-163-50794-10111457

PATIENT
  Sex: Male
  Weight: 132 kg

DRUGS (16)
  1. VIDAZA [Suspect]
     Route: 065
     Dates: start: 20101021, end: 20101021
  2. G-CSF [Suspect]
     Route: 065
     Dates: start: 20101018, end: 20101021
  3. PLERIXAFOR [Suspect]
     Route: 065
     Dates: start: 20101020, end: 20101021
  4. ANDROGEL [Concomitant]
     Route: 065
  5. ALPRAZOLAM [Concomitant]
     Route: 048
  6. CALCIUM [Concomitant]
     Route: 065
  7. VITAMIN D [Concomitant]
     Route: 065
  8. SIMVASTATIN [Concomitant]
     Route: 065
  9. LEXAPRO [Concomitant]
     Route: 048
  10. NORVASC [Concomitant]
     Route: 048
  11. MICARDIS [Concomitant]
     Dosage: 80/25
     Route: 048
  12. VANCOMYCIN [Concomitant]
     Route: 065
  13. CEFEPIME [Concomitant]
     Route: 065
  14. SOLU-MEDROL [Concomitant]
     Route: 065
  15. CYTARABINE [Concomitant]
     Route: 065
     Dates: start: 20101103, end: 20101109
  16. IDARUBICIN HCL [Concomitant]
     Route: 065
     Dates: start: 20101103, end: 20101105

REACTIONS (3)
  - CHEST DISCOMFORT [None]
  - LEUKOCYTOSIS [None]
  - TINNITUS [None]
